FAERS Safety Report 7927736-X (Version None)
Quarter: 2011Q4

REPORT INFORMATION
  Report Type: 
  Country: None (occurrence: None)
  Receive Date: 20111118
  Receipt Date: 20101004
  Transmission Date: 20120403
  Serious: No
  Sender: FDA-Public Use
  Company Number: US-BRISTOL-MYERS SQUIBB COMPANY-15316987

PATIENT
  Sex: Female

DRUGS (2)
  1. METFORMIN HCL [Suspect]
     Dosage: EXTENDED RELEASE TAB
     Route: 048
  2. ALLEGRA-D 12 HOUR [Concomitant]

REACTIONS (1)
  - DIARRHOEA [None]
